FAERS Safety Report 25526278 (Version 1)
Quarter: 2025Q3

REPORT INFORMATION
  Report Type: Report from Study
  Country: CA (occurrence: CA)
  Receive Date: 20250707
  Receipt Date: 20250707
  Transmission Date: 20251021
  Serious: Yes (Other)
  Sender: SANDOZ
  Company Number: CA-SANDOZ-SDZ2023CA002951

PATIENT
  Sex: Male

DRUGS (9)
  1. HYRIMOZ [Suspect]
     Active Substance: ADALIMUMAB-ADAZ
     Indication: Crohn^s disease
     Dosage: 40 MG, QW
     Route: 058
     Dates: start: 20211223
  2. HYRIMOZ [Suspect]
     Active Substance: ADALIMUMAB-ADAZ
     Dosage: 80 MG, QW
     Route: 058
     Dates: start: 20211223
  3. PREDNISONE [Suspect]
     Active Substance: PREDNISONE
     Indication: Eye disorder
     Route: 065
  4. ALPRAZOLAM [Concomitant]
     Active Substance: ALPRAZOLAM
     Indication: Eye inflammation
     Dosage: 2 MG, TID
     Route: 065
  5. TESTOSTERONE [Concomitant]
     Active Substance: TESTOSTERONE
     Indication: Eye inflammation
     Dosage: 1 ML, Q2W
     Route: 065
  6. OXYCODONE [Concomitant]
     Active Substance: OXYCODONE
     Indication: Eye inflammation
     Route: 065
  7. OXYCODONE [Concomitant]
     Active Substance: OXYCODONE
     Indication: Eye inflammation
     Route: 065
  8. DEXAMETHASONE\TOBRAMYCIN [Concomitant]
     Active Substance: DEXAMETHASONE\TOBRAMYCIN
     Indication: Eye inflammation
     Dosage: ONE TIME DAILY AT BEDTIME FOR MY EYES
     Route: 065
  9. VITAMIN B12 [Concomitant]
     Active Substance: CYANOCOBALAMIN
     Indication: Eye inflammation
     Dosage: UNK, QMO
     Route: 065

REACTIONS (4)
  - General physical health deterioration [Unknown]
  - Diarrhoea [Unknown]
  - Feeling abnormal [Unknown]
  - Off label use [Unknown]
